APPROVED DRUG PRODUCT: ACYCLOVIR
Active Ingredient: ACYCLOVIR
Strength: 200MG
Dosage Form/Route: CAPSULE;ORAL
Application: A204313 | Product #001 | TE Code: AB
Applicant: CADILA HEALTHCARE LTD
Approved: Mar 25, 2016 | RLD: No | RS: No | Type: RX